FAERS Safety Report 9007780 (Version 1)
Quarter: 2013Q1

REPORT INFORMATION
  Report Type: Spontaneous
  Country: US (occurrence: US)
  Receive Date: 20130111
  Receipt Date: 20130111
  Transmission Date: 20140127
  Serious: Yes (Other)
  Sender: FDA-Public Use
  Company Number: US-009507513-0901USA02250

PATIENT
  Age: 3 Year
  Sex: Male

DRUGS (1)
  1. SINGULAIR [Suspect]
     Indication: ASTHMA
     Dosage: 5 MG, QD
     Route: 048
     Dates: start: 20030301, end: 20080829

REACTIONS (20)
  - Abnormal behaviour [Recovering/Resolving]
  - Aggression [Recovering/Resolving]
  - Anger [Recovering/Resolving]
  - Anhedonia [Recovering/Resolving]
  - Anxiety [Recovering/Resolving]
  - Apathy [Recovering/Resolving]
  - Compulsions [Recovering/Resolving]
  - Conversion disorder [Recovering/Resolving]
  - Depressed mood [Recovering/Resolving]
  - Disturbance in attention [Recovering/Resolving]
  - Terminal insomnia [Recovering/Resolving]
  - Frustration [Recovering/Resolving]
  - Impulse-control disorder [Recovering/Resolving]
  - Initial insomnia [Recovering/Resolving]
  - Memory impairment [Recovering/Resolving]
  - Mood altered [Recovering/Resolving]
  - Negativism [Recovering/Resolving]
  - Obsessive-compulsive disorder [Recovering/Resolving]
  - Restlessness [Recovering/Resolving]
  - Social avoidant behaviour [Recovering/Resolving]
